FAERS Safety Report 10206199 (Version 1)
Quarter: 2014Q2

REPORT INFORMATION
  Report Type: Spontaneous
  Country: FR (occurrence: FR)
  Receive Date: 20140530
  Receipt Date: 20140530
  Transmission Date: 20141212
  Serious: Yes (Hospitalization, Other)
  Sender: FDA-Public Use
  Company Number: FR-TEVA-484082ISR

PATIENT
  Age: 58 Year
  Sex: Female

DRUGS (3)
  1. PAROXETINE [Suspect]
     Route: 065
  2. ZOLPIDEM [Suspect]
     Route: 065
  3. ALIMEMAZINE [Suspect]
     Route: 065

REACTIONS (1)
  - Acute generalised exanthematous pustulosis [Recovered/Resolved]
